FAERS Safety Report 4469767-0 (Version None)
Quarter: 2004Q4

REPORT INFORMATION
  Report Type: 
  Country: None (occurrence: None)
  Receive Date: 20041008
  Receipt Date: 20040830
  Transmission Date: 20050328
  Serious: Yes (Other)
  Sender: FDA-Public Use
  Company Number: DE-ROCHE-379129

PATIENT
  Age: 27 Year
  Sex: Female
  Weight: 69 kg

DRUGS (4)
  1. ROACCUTAN [Suspect]
     Indication: ACNE PUSTULAR
     Route: 048
     Dates: start: 20040824, end: 20040830
  2. ROACCUTAN [Suspect]
     Route: 048
     Dates: start: 20040809, end: 20040823
  3. ROACCUTAN [Suspect]
     Route: 048
     Dates: start: 20040617, end: 20040808
  4. ROACCUTAN [Suspect]
     Route: 048
     Dates: start: 20040521, end: 20040616

REACTIONS (4)
  - CONDUCTIVE DEAFNESS [None]
  - DYSACUSIS [None]
  - HEARING IMPAIRED [None]
  - TINNITUS [None]
